FAERS Safety Report 5469456-X (Version None)
Quarter: 2007Q3

REPORT INFORMATION
  Report Type: 
  Country: None (occurrence: None)
  Receive Date: 20070820
  Receipt Date: 20070427
  Transmission Date: 20080115
  Serious: No
  Sender: FDA-Public Use
  Company Number: WAES 0704USA06485

PATIENT
  Sex: Female

DRUGS (7)
  1. JANUVIA [Suspect]
     Indication: TYPE 2 DIABETES MELLITUS
     Dosage: 100 MG/DAILY/PO
     Route: 048
     Dates: start: 20070419
  2. BENICAR [Concomitant]
  3. MIRAPEX [Concomitant]
  4. NEXIUM [Concomitant]
  5. TRICOR [Concomitant]
  6. ZANTAC [Concomitant]
  7. ZYRTEC [Concomitant]

REACTIONS (2)
  - FEELING COLD [None]
  - HAEMORRHAGE [None]
